FAERS Safety Report 4432215-0 (Version None)
Quarter: 2004Q3

REPORT INFORMATION
  Report Type: 
  Country: None (occurrence: None)
  Receive Date: 20040820
  Receipt Date: 20040802
  Transmission Date: 20050211
  Serious: Yes (Hospitalization, Other)
  Sender: FDA-Public Use
  Company Number: MAG-2004-0000281

PATIENT
  Age: 49 Year
  Sex: Female

DRUGS (3)
  1. THEOPHYLLINE [Suspect]
     Indication: ASTHMA
     Dosage: 800 MG, DAILY, ORAL
     Route: 048
     Dates: start: 20040601
  2. NIFEDIPINE [Suspect]
  3. METYLDOPA (METHYLDOPA) [Concomitant]

REACTIONS (5)
  - AMMONIA INCREASED [None]
  - DEPRESSED LEVEL OF CONSCIOUSNESS [None]
  - INTRACRANIAL PRESSURE INCREASED [None]
  - LIVER DISORDER [None]
  - OVERDOSE [None]
